FAERS Safety Report 5297742-5 (Version None)
Quarter: 2007Q2

REPORT INFORMATION
  Report Type: 
  Country: None (occurrence: None)
  Receive Date: 20070406
  Receipt Date: 20070323
  Transmission Date: 20071010
  Serious: Yes (Other)
  Sender: FDA-Public Use
  Company Number: 2007-00299FE

PATIENT
  Age: 4 Year
  Sex: Female

DRUGS (1)
  1. GROWTH HORMONE () (HUMAN GROWTH HORMONE, RECOMBINANT) [Suspect]
     Dosage: 10.5 MG/3.9 MG

REACTIONS (3)
  - CHORIORETINOPATHY [None]
  - RETINAL OEDEMA [None]
  - VISUAL ACUITY REDUCED [None]
